FAERS Safety Report 25880667 (Version 1)
Quarter: 2025Q4

REPORT INFORMATION
  Report Type: Spontaneous
  Country: EU (occurrence: EU)
  Receive Date: 20251004
  Receipt Date: 20251004
  Transmission Date: 20260118
  Serious: Yes (Hospitalization, Other)
  Sender: AUROBINDO
  Company Number: EU-AFSSAPS-ST2025001056

PATIENT
  Age: 25 Year
  Sex: Male

DRUGS (3)
  1. POLYETHYLENE GLYCOL 4000 [Suspect]
     Active Substance: POLYETHYLENE GLYCOL 4000
     Indication: Constipation
     Dosage: 10 GRAM, ONCE A DAY
     Route: 048
     Dates: start: 20241122, end: 20241123
  2. ROXITHROMYCIN [Concomitant]
     Active Substance: ROXITHROMYCIN
     Indication: Tonsillitis
     Dosage: 150 MILLIGRAM
     Route: 048
     Dates: start: 20241122, end: 20241122
  3. Charbon active [Concomitant]
     Indication: Gastrointestinal pain
     Dosage: 70 MILLIGRAM
     Route: 048
     Dates: start: 20241122, end: 20241122

REACTIONS (4)
  - Anaphylactic shock [Recovered/Resolved]
  - Laryngeal oedema [Recovered/Resolved]
  - Pruritus [Recovered/Resolved]
  - Chest discomfort [Recovered/Resolved]

NARRATIVE: CASE EVENT DATE: 20241123
